FAERS Safety Report 19695308 (Version 29)
Quarter: 2025Q1

REPORT INFORMATION
  Report Type: Report from Study
  Country: US (occurrence: US)
  Receive Date: 20210812
  Receipt Date: 20250310
  Transmission Date: 20250409
  Serious: Yes (Hospitalization, Other)
  Sender: TAKEDA
  Company Number: US-SHIRE-US201727413

PATIENT
  Age: 78 Year
  Sex: Female
  Weight: 71 kg

DRUGS (38)
  1. HUMAN IMMUNOGLOBULIN G [Suspect]
     Active Substance: HUMAN IMMUNOGLOBULIN G
     Indication: Primary immunodeficiency syndrome
     Dosage: 12 GRAM, 1/WEEK
     Dates: start: 20210305
  2. HUMAN IMMUNOGLOBULIN G [Suspect]
     Active Substance: HUMAN IMMUNOGLOBULIN G
     Indication: Immunodeficiency common variable
     Dosage: 12 GRAM, 1/WEEK
  3. BENADRYL [Suspect]
     Active Substance: DIPHENHYDRAMINE HYDROCHLORIDE
     Indication: Product used for unknown indication
  4. TYLENOL [Suspect]
     Active Substance: ACETAMINOPHEN
     Indication: Product used for unknown indication
  5. BUDESONIDE [Concomitant]
     Active Substance: BUDESONIDE
  6. FUROSEMIDE [Concomitant]
     Active Substance: FUROSEMIDE
  7. ASPIRIN [Concomitant]
     Active Substance: ASPIRIN
  8. METOPROLOL SUCCINATE [Concomitant]
     Active Substance: METOPROLOL SUCCINATE
  9. CALCIUM PLUS D3 [Concomitant]
  10. DICYCLOMINE HYDROCHLORIDE [Concomitant]
     Active Substance: DICYCLOMINE HYDROCHLORIDE
  11. GABAPENTIN [Concomitant]
     Active Substance: GABAPENTIN
  12. IRON [Concomitant]
     Active Substance: IRON
  13. PREDNISONE [Concomitant]
     Active Substance: PREDNISONE
  14. TYLENOL EXTRA STRENGTH [Concomitant]
     Active Substance: ACETAMINOPHEN
  15. PERFOROMIST [Concomitant]
     Active Substance: FORMOTEROL FUMARATE DIHYDRATE
  16. ATORVASTATIN CALCIUM [Concomitant]
     Active Substance: ATORVASTATIN CALCIUM
  17. OXYGEN [Concomitant]
     Active Substance: OXYGEN
  18. NITROGLYCERIN [Concomitant]
     Active Substance: NITROGLYCERIN
  19. CELLCEPT [Concomitant]
     Active Substance: MYCOPHENOLATE MOFETIL
  20. ALBUTEROL SULFATE [Concomitant]
     Active Substance: ALBUTEROL SULFATE
  21. MONTELUKAST SODIUM [Concomitant]
     Active Substance: MONTELUKAST SODIUM
  22. OMEPRAZOLE [Concomitant]
     Active Substance: OMEPRAZOLE
  23. TIZANIDINE HYDROCHLORIDE [Concomitant]
     Active Substance: TIZANIDINE HYDROCHLORIDE
  24. LOSARTAN POTASSIUM [Concomitant]
     Active Substance: LOSARTAN POTASSIUM
  25. VITAMIN D [Concomitant]
     Active Substance: VITAMIN D NOS
  26. OXYBUTYNIN CHLORIDE [Concomitant]
     Active Substance: OXYBUTYNIN CHLORIDE
  27. BENZONATATE [Concomitant]
     Active Substance: BENZONATATE
  28. DIPHENHYDRAMINE [Concomitant]
     Active Substance: DIPHENHYDRAMINE
  29. EPINEPHRINE [Concomitant]
     Active Substance: EPINEPHRINE
  30. LIDOCAINE\PRILOCAINE [Concomitant]
     Active Substance: LIDOCAINE\PRILOCAINE
  31. ACETAMINOPHEN [Concomitant]
     Active Substance: ACETAMINOPHEN
  32. LISINOPRIL [Concomitant]
     Active Substance: LISINOPRIL
  33. MELOXICAM [Concomitant]
     Active Substance: MELOXICAM
  34. ATOVAQUONE [Concomitant]
     Active Substance: ATOVAQUONE
  35. DOXYCYCLINE HYCLATE [Concomitant]
     Active Substance: DOXYCYCLINE HYCLATE
  36. DIPHENHYDRAMINE HYDROCHLORIDE [Concomitant]
     Active Substance: DIPHENHYDRAMINE HYDROCHLORIDE
  37. OFEV [Concomitant]
     Active Substance: NINTEDANIB
  38. AZITHROMYCIN [Concomitant]
     Active Substance: AZITHROMYCIN

REACTIONS (38)
  - Hypersomnia [Recovered/Resolved]
  - Nausea [Recovered/Resolved]
  - Bronchitis [Recovering/Resolving]
  - Escherichia urinary tract infection [Unknown]
  - Delusion [Unknown]
  - Kidney infection [Unknown]
  - Gait disturbance [Recovered/Resolved]
  - Chronic obstructive pulmonary disease [Unknown]
  - Pneumonia [Unknown]
  - Dehydration [Recovered/Resolved]
  - Hallucination [Unknown]
  - Skin cancer [Unknown]
  - Interstitial lung disease [Unknown]
  - Vomiting [Recovered/Resolved]
  - Dizziness [Unknown]
  - Fatigue [Unknown]
  - Influenza [Unknown]
  - Lower limb fracture [Unknown]
  - Infusion site discharge [Unknown]
  - Hyperaesthesia teeth [Unknown]
  - Road traffic accident [Unknown]
  - Fall [Unknown]
  - Urinary tract infection [Unknown]
  - Nervousness [Unknown]
  - Product use issue [Unknown]
  - Disorientation [Unknown]
  - Feeling abnormal [Unknown]
  - Vertigo [Unknown]
  - Stomatitis [Unknown]
  - Asthma [Unknown]
  - Contusion [Unknown]
  - Asthenia [Unknown]
  - Hypertension [Unknown]
  - Somnolence [Unknown]
  - Cough [Recovering/Resolving]
  - Diarrhoea [Unknown]
  - Headache [Unknown]
  - Malaise [Unknown]

NARRATIVE: CASE EVENT DATE: 20230131
